FAERS Safety Report 5815753-5 (Version None)
Quarter: 2008Q3

REPORT INFORMATION
  Report Type: 
  Country: None (occurrence: None)
  Receive Date: 20080721
  Receipt Date: 20080709
  Transmission Date: 20090109
  Serious: Yes (Life-Threatening, Hospitalization)
  Sender: FDA-Public Use
  Company Number: US-NOVOPROD-275311

PATIENT
  Sex: Male

DRUGS (7)
  1. NORDITROPIN NORDIFLEX [Suspect]
     Indication: GROWTH RETARDATION
     Dosage: .4 MG, QD
     Route: 058
     Dates: start: 20070607, end: 20080429
  2. GENOTROPIN [Suspect]
     Indication: GROWTH RETARDATION
     Dosage: .3 MG, QD
     Route: 058
     Dates: start: 20060215, end: 20070601
  3. FLOVENT [Concomitant]
     Indication: BRONCHIAL HYPERREACTIVITY
     Dosage: 2 PUFFS
     Route: 055
  4. ALBUTEROL [Concomitant]
     Indication: DRUG USE FOR UNKNOWN INDICATION
     Dosage: 2 PUFFS Q4H
     Route: 055
  5. PREVACID [Concomitant]
     Indication: DRUG USE FOR UNKNOWN INDICATION
     Dosage: 15 MG, QD
     Route: 048
  6. BACTROBAN [Concomitant]
     Indication: DRUG USE FOR UNKNOWN INDICATION
     Dosage: UNKNOWN
     Route: 061
  7. FLUTICASONE PROPIONATE [Concomitant]
     Indication: DRUG USE FOR UNKNOWN INDICATION
     Dosage: UNK, QD
     Route: 045

REACTIONS (2)
  - PNEUMONIA ASPIRATION [None]
  - SLEEP APNOEA SYNDROME [None]
